FAERS Safety Report 14982607 (Version 1)
Quarter: 2018Q2

REPORT INFORMATION
  Report Type: Spontaneous
  Country: DE (occurrence: DE)
  Receive Date: 20180607
  Receipt Date: 20180607
  Transmission Date: 20180711
  Serious: Yes (Other)
  Sender: FDA-Public Use
  Company Number: DE-ALK-ABELLO A/S-2018AA000823

PATIENT

DRUGS (1)
  1. ACARIZAX 12 SQ-HDM [Suspect]
     Active Substance: DERMATOPHAGOIDES FARINAE\DERMATOPHAGOIDES PTERONYSSINUS
     Indication: MITE ALLERGY
     Dosage: 12 SQ-HDM
     Dates: start: 20180122, end: 20180203

REACTIONS (8)
  - Ear pruritus [Recovered/Resolved]
  - Glomerular filtration rate decreased [Unknown]
  - Blood creatine phosphokinase increased [Not Recovered/Not Resolved]
  - Electrocardiogram QT prolonged [Not Recovered/Not Resolved]
  - Hypersensitivity [Recovered/Resolved]
  - Swollen tongue [Recovered/Resolved]
  - Blood glucose increased [Unknown]
  - C-reactive protein increased [Unknown]

NARRATIVE: CASE EVENT DATE: 20180202
